FAERS Safety Report 12654449 (Version 1)
Quarter: 2016Q3

REPORT INFORMATION
  Report Type: Spontaneous
  Country: US (occurrence: None)
  Receive Date: 20160815
  Receipt Date: 20160815
  Transmission Date: 20161109
  Serious: No
  Sender: FDA-Public Use
  Company Number: None

PATIENT
  Age: 40 Year
  Sex: Female

DRUGS (1)
  1. SUTENT [Suspect]
     Active Substance: SUNITINIB MALATE
     Indication: IRON DEFICIENCY ANAEMIA
     Route: 048
     Dates: start: 20160719

REACTIONS (6)
  - Swollen tongue [None]
  - Chills [None]
  - Decreased appetite [None]
  - Nausea [None]
  - Eye swelling [None]
  - Myalgia [None]

NARRATIVE: CASE EVENT DATE: 20160814
